FAERS Safety Report 10922353 (Version 1)
Quarter: 2015Q1

REPORT INFORMATION
  Report Type: Spontaneous
  Country: IN (occurrence: IN)
  Receive Date: 20150317
  Receipt Date: 20150317
  Transmission Date: 20150721
  Serious: Yes (Hospitalization)
  Sender: FDA-Public Use
  Company Number: IN-ROXANE LABORATORIES, INC.-2015-RO-00473RO

PATIENT
  Age: 50 Year
  Sex: Female

DRUGS (3)
  1. THP [Suspect]
     Active Substance: UNSPECIFIED INGREDIENT
     Indication: SCHIZOAFFECTIVE DISORDER
     Dosage: 2 MG
     Route: 065
  2. RISPERIDONE. [Suspect]
     Active Substance: RISPERIDONE
     Indication: SCHIZOAFFECTIVE DISORDER
     Dosage: 4 MG
     Route: 065
  3. ZUCLOPENTHIXOL [Suspect]
     Active Substance: ZUCLOPENTHIXOL
     Indication: SCHIZOAFFECTIVE DISORDER
     Route: 050

REACTIONS (1)
  - Hyperammonaemia [Recovered/Resolved]
